FAERS Safety Report 17230295 (Version 1)
Quarter: 2020Q1

REPORT INFORMATION
  Report Type: Spontaneous
  Country: US (occurrence: US)
  Receive Date: 20200103
  Receipt Date: 20200103
  Transmission Date: 20200409
  Serious: Yes (Other)
  Sender: FDA-Public Use
  Company Number: US-BAYER-2019-238068

PATIENT
  Age: 68 Year
  Sex: Female

DRUGS (3)
  1. MIRALAX [Suspect]
     Active Substance: POLYETHYLENE GLYCOL 3350
     Indication: DIVERTICULUM
     Dosage: UNK
     Route: 048
     Dates: start: 201909
  2. MIRALAX [Suspect]
     Active Substance: POLYETHYLENE GLYCOL 3350
     Indication: CONSTIPATION
     Dosage: UNK
     Route: 048
     Dates: start: 201911
  3. MIRALAX [Suspect]
     Active Substance: POLYETHYLENE GLYCOL 3350
     Indication: CONSTIPATION
     Dosage: UNK

REACTIONS (9)
  - Product use in unapproved indication [Unknown]
  - Chest pain [Unknown]
  - Off label use [Unknown]
  - Abnormal faeces [Unknown]
  - Abdominal rigidity [Unknown]
  - Diarrhoea [Unknown]
  - Product use issue [Unknown]
  - Labelled drug-disease interaction medication error [None]
  - Intestinal obstruction [Unknown]

NARRATIVE: CASE EVENT DATE: 201909
